FAERS Safety Report 9496651 (Version 1)
Quarter: 2013Q3

REPORT INFORMATION
  Report Type: Spontaneous
  Country: GB (occurrence: BR)
  Receive Date: 20130904
  Receipt Date: 20130904
  Transmission Date: 20140515
  Serious: Yes (Other)
  Sender: FDA-Public Use
  Company Number: GB-009507513-1308BRA014446

PATIENT
  Sex: Male

DRUGS (6)
  1. VICTRELIS [Suspect]
     Indication: HEPATITIS C
     Route: 048
  2. RIBAVIRIN (NON-MERCK) [Concomitant]
     Indication: HEPATITIS C
     Dosage: 250 MG, QID
     Route: 048
  3. INTERFERON ALFA-2A [Concomitant]
     Indication: HEPATITIS C
     Dosage: UNK, QW
  4. HYDROCHLOROTHIAZIDE [Concomitant]
     Dosage: UNK, QD
  5. CAPTOPRIL [Concomitant]
     Indication: HYPERTENSION
     Dosage: 25 MG, QD
  6. PROPRANOLOL HYDROCHLORIDE [Concomitant]
     Indication: HYPERTENSION
     Dosage: 40 MG, BID

REACTIONS (2)
  - Hepatic cirrhosis [Unknown]
  - Drug ineffective [Unknown]
